FAERS Safety Report 4717945-5 (Version None)
Quarter: 2005Q3

REPORT INFORMATION
  Report Type: 
  Country: None (occurrence: None)
  Receive Date: 20050719
  Receipt Date: 20050719
  Transmission Date: 20060218
  Serious: Yes (Other)
  Sender: FDA-Public Use
  Company Number: None

PATIENT
  Sex: Female
  Weight: 95.2554 kg

DRUGS (2)
  1. NARDIL [Suspect]
     Indication: DEPRESSION
     Dosage: 15 MG 3 ORAL
     Route: 048
     Dates: start: 20030323, end: 20050718
  2. NARDIL [Suspect]
     Indication: PANIC ATTACK
     Dosage: 15 MG 3 ORAL
     Route: 048
     Dates: start: 20030323, end: 20050718

REACTIONS (3)
  - INSOMNIA [None]
  - PANIC ATTACK [None]
  - PHARMACEUTICAL PRODUCT COMPLAINT [None]
